FAERS Safety Report 26114183 (Version 1)
Quarter: 2025Q4

REPORT INFORMATION
  Report Type: Spontaneous
  Country: CN (occurrence: CN)
  Receive Date: 20251202
  Receipt Date: 20251202
  Transmission Date: 20260118
  Serious: Yes (Hospitalization, Disabling, Other)
  Sender: PFIZER
  Company Number: CN-TAKEDA-2025TUS106159

PATIENT
  Age: 21 Year
  Sex: Female

DRUGS (9)
  1. BRENTUXIMAB VEDOTIN [Suspect]
     Active Substance: BRENTUXIMAB VEDOTIN
     Indication: Hodgkin^s disease
     Dosage: 81 MILLIGRAM ON DAY 0
     Route: 041
     Dates: start: 20251107
  2. CYCLOPHOSPHAMIDE [Suspect]
     Active Substance: CYCLOPHOSPHAMIDE
     Indication: Hodgkin^s disease
     Dosage: 1800 MILLIGRAM ON DAY 1
     Route: 041
     Dates: start: 20251108
  3. DACARBAZINE [Suspect]
     Active Substance: DACARBAZINE
     Indication: Hodgkin^s disease
     Dosage: 360 MILLIGRAM ON DAY 2-3
     Route: 041
     Dates: start: 20251109, end: 20251110
  4. DEXAMETHASONE SODIUM PHOSPHATE [Suspect]
     Active Substance: DEXAMETHASONE SODIUM PHOSPHATE
     Indication: Hodgkin^s disease
     Dosage: 40 MILLIGRAM ON DAY 1-4
     Route: 041
     Dates: start: 20251108, end: 20251111
  5. DOXORUBICIN HYDROCHLORIDE [Suspect]
     Active Substance: DOXORUBICIN HYDROCHLORIDE
     Indication: Hodgkin^s disease
     Dosage: 30 MILLIGRAM ON DAY 1
     Route: 041
     Dates: start: 20251108
  6. ETOPOSIDE [Suspect]
     Active Substance: ETOPOSIDE
     Indication: Hodgkin^s disease
     Dosage: 200 MILLIGRAM  ON DAY 1-3
     Route: 041
     Dates: start: 20251108, end: 20251110
  7. MESNA [Suspect]
     Active Substance: MESNA
     Indication: Prophylaxis
     Dosage: 0.36 GRAM, QD
     Route: 042
     Dates: start: 20251108
  8. PALONOSETRON HYDROCHLORIDE [Suspect]
     Active Substance: PALONOSETRON HYDROCHLORIDE
     Indication: Prophylaxis
     Dosage: 0.25 MILLIGRAM, QD
     Route: 042
     Dates: start: 20251108
  9. SULFAMETHOXAZOLE [Suspect]
     Active Substance: SULFAMETHOXAZOLE
     Indication: Prophylaxis
     Dosage: UNK, QD
     Route: 048
     Dates: start: 20251107

REACTIONS (1)
  - Myelosuppression [Recovering/Resolving]

NARRATIVE: CASE EVENT DATE: 20251118
